FAERS Safety Report 15836891 (Version 1)
Quarter: 2019Q1

REPORT INFORMATION
  Report Type: Spontaneous
  Country: TW (occurrence: TW)
  Receive Date: 20190117
  Receipt Date: 20190117
  Transmission Date: 20190417
  Serious: Yes (Hospitalization, Other)
  Sender: FDA-Public Use
  Company Number: TW-STRIDES ARCOLAB LIMITED-2019SP000436

PATIENT
  Age: 45 Year
  Sex: Male

DRUGS (18)
  1. SOLU-MEDROL [Suspect]
     Active Substance: METHYLPREDNISOLONE SODIUM SUCCINATE
     Dosage: 250 MG, UNKNOWN
     Route: 042
  2. SULFAMETHOXAZOLE AND TRIMETHOPRIM [Concomitant]
     Active Substance: SULFAMETHOXAZOLE\TRIMETHOPRIM
     Indication: PROPHYLAXIS
     Dosage: 400 MG/80 MG
     Route: 065
  3. TACROLIMUS. [Suspect]
     Active Substance: TACROLIMUS
     Dosage: UNK
  4. VALGANCICLOVIR. [Concomitant]
     Active Substance: VALGANCICLOVIR
     Indication: ANTIVIRAL PROPHYLAXIS
     Dosage: 900 MG, PER DAY
     Route: 048
  5. TACROLIMUS. [Suspect]
     Active Substance: TACROLIMUS
     Dosage: UNK
  6. PREDNISOLONE. [Suspect]
     Active Substance: PREDNISOLONE
     Indication: TRANSPLANT
     Dosage: 60 MG, PER DAY
     Route: 048
  7. PREDNISOLONE. [Suspect]
     Active Substance: PREDNISOLONE
     Dosage: SLOWLY TAPERED UNTIL A DOSE OF 10 MG DAILY WAS REACHED
     Route: 048
  8. CLOBETASOL [Suspect]
     Active Substance: CLOBETASOL
     Indication: TRANSPLANT
     Dosage: UNK
     Route: 061
  9. TACROLIMUS. [Suspect]
     Active Substance: TACROLIMUS
     Dosage: CREAM
     Route: 061
  10. MYCOPHENOLATE MOFETIL. [Suspect]
     Active Substance: MYCOPHENOLATE MOFETIL
     Indication: TRANSPLANT
     Dosage: 2 G, UNK
     Route: 065
  11. THYMOGLOBULIN [Concomitant]
     Active Substance: LAPINE T-LYMPHOCYTE IMMUNE GLOBULIN
     Indication: TRANSPLANT
     Dosage: 1.25 MG/KG PER DAY
     Route: 065
  12. TACROLIMUS. [Suspect]
     Active Substance: TACROLIMUS
     Dosage: CREAM
     Route: 061
  13. PREDNISOLONE. [Suspect]
     Active Substance: PREDNISOLONE
     Dosage: 10 MG/DAY
     Route: 048
  14. SOLU-MEDROL [Suspect]
     Active Substance: METHYLPREDNISOLONE SODIUM SUCCINATE
     Dosage: 125 MG, UNKNOWN ON DAY 1
     Route: 042
  15. GANCICLOVIR. [Concomitant]
     Active Substance: GANCICLOVIR
     Indication: ANTIVIRAL PROPHYLAXIS
     Dosage: 10 MG/KG, UNK
     Route: 042
  16. TACROLIMUS. [Suspect]
     Active Substance: TACROLIMUS
     Indication: TRANSPLANT
     Dosage: UNK
  17. TACROLIMUS. [Suspect]
     Active Substance: TACROLIMUS
     Dosage: INCREASED THE TITRATION OF THE TACROLIMUS DOSAGE
     Route: 065
  18. SOLU-MEDROL [Suspect]
     Active Substance: METHYLPREDNISOLONE SODIUM SUCCINATE
     Indication: TRANSPLANT
     Dosage: 500 MG, UNKNOWN (INDUCTION BOLUS)
     Route: 042

REACTIONS (4)
  - Osteonecrosis [Recovered/Resolved]
  - Bone infarction [Recovered/Resolved]
  - Off label use [Unknown]
  - Arthralgia [Recovered/Resolved]
